FAERS Safety Report 12322240 (Version 15)
Quarter: 2018Q3

REPORT INFORMATION
  Report Type: Spontaneous
  Country: DE (occurrence: DE)
  Receive Date: 20160502
  Receipt Date: 20180928
  Transmission Date: 20181010
  Serious: Yes (Death, Hospitalization, Other)
  Sender: FDA-Public Use
  Company Number: DE-SA-2016SA080913

PATIENT
  Age: 38 Year
  Sex: Female
  Weight: 97 kg

DRUGS (18)
  1. MONO?EMBOLEX [Suspect]
     Active Substance: CERTOPARIN SODIUM
     Indication: THROMBOSIS PROPHYLAXIS
     Dosage: UNK UNK,UNK
     Route: 065
     Dates: start: 201604, end: 201604
  2. VESIKUR [Concomitant]
     Active Substance: SOLIFENACIN SUCCINATE
     Indication: URGE INCONTINENCE
     Dosage: 10 MG,QD
  3. REKAWAN [Concomitant]
     Active Substance: POTASSIUM CHLORIDE
     Dosage: UNK
     Dates: start: 20160418
  4. VESIKUR [Concomitant]
     Active Substance: SOLIFENACIN SUCCINATE
  5. ACICLOVIR [Concomitant]
     Active Substance: ACYCLOVIR
     Dosage: UNK
     Dates: start: 20160418
  6. CETIRIZINE [Concomitant]
     Active Substance: CETIRIZINE HYDROCHLORIDE
     Dosage: UNK
     Dates: start: 20160418
  7. PARACETAMOL [Concomitant]
     Active Substance: ACETAMINOPHEN
     Dosage: UNK
     Dates: start: 20160418
  8. CORTISONE [Suspect]
     Active Substance: CORTISONE\HYDROCORTISONE
     Dosage: UNK UNK,UNK
     Route: 065
  9. FAMPYRA [Concomitant]
     Active Substance: DALFAMPRIDINE
     Dosage: 10 MG,BID
  10. METHYLPREDNISOLONE. [Suspect]
     Active Substance: METHYLPREDNISOLONE
     Dosage: 1 G,QD
     Route: 042
     Dates: start: 20160418, end: 20160420
  11. RANITIDINE RATIOPHARM [Concomitant]
     Indication: PROPHYLAXIS
     Dosage: 1 DF, QD
     Route: 042
     Dates: start: 20160418, end: 20160420
  12. PARACETAMOL [Suspect]
     Active Substance: ACETAMINOPHEN
     Dosage: UNK UNK,UNK
     Route: 065
  13. TAVANIC [Concomitant]
     Active Substance: LEVOFLOXACIN
     Indication: URINARY TRACT INFECTION
     Dosage: 500 MG,QD
     Route: 048
     Dates: start: 20160418, end: 20160420
  14. TAVEGIL [CLEMASTINE] [Concomitant]
     Indication: PROPHYLAXIS
     Dosage: UNK UNK,QD
     Route: 042
     Dates: start: 20160418, end: 20160420
  15. MAYRA [Concomitant]
     Indication: CONTRACEPTION
     Dosage: UNK UNK,QD
     Route: 048
  16. LEMTRADA [Suspect]
     Active Substance: ALEMTUZUMAB
     Indication: MULTIPLE SCLEROSIS
     Dosage: 12 MG,QD
     Route: 041
     Dates: start: 20160418, end: 20160420
  17. LEMTRADA [Suspect]
     Active Substance: ALEMTUZUMAB
     Dosage: UNK UNK,UNK
     Route: 042
     Dates: start: 20160422
  18. MONO?EMBOLEX [Concomitant]
     Active Substance: CERTOPARIN SODIUM
     Dosage: 3000 IU,UNK
     Route: 058
     Dates: start: 20160418

REACTIONS (26)
  - Vasculitis necrotising [Fatal]
  - Blood disorder [Unknown]
  - Hypertension [Fatal]
  - Infusion related reaction [Unknown]
  - Heart rate decreased [Unknown]
  - Brain oedema [Unknown]
  - Cerebral ventricular rupture [Unknown]
  - Cerebral haemorrhage [Fatal]
  - Mydriasis [Unknown]
  - Feeling hot [Unknown]
  - Blood pressure increased [Unknown]
  - Vomiting [Fatal]
  - Brain death [Fatal]
  - Cytokine storm [Unknown]
  - Hydrocephalus [Unknown]
  - Cerebral hypoperfusion [Unknown]
  - Haemorrhagic stroke [Fatal]
  - Seizure [Fatal]
  - Headache [Recovered/Resolved]
  - Nausea [Fatal]
  - Organ failure [Fatal]
  - Acute disseminated encephalomyelitis [Unknown]
  - Chronic fatigue syndrome [Unknown]
  - Loss of consciousness [Fatal]
  - Intracranial pressure increased [Fatal]
  - Bradycardia [Fatal]

NARRATIVE: CASE EVENT DATE: 201604
